FAERS Safety Report 8827370 (Version 1)
Quarter: 2012Q4

REPORT INFORMATION
  Report Type: 
  Country: US (occurrence: US)
  Receive Date: 20121005
  Receipt Date: 20121005
  Transmission Date: 20130627
  Serious: No
  Sender: FDA-Public Use
  Company Number: US-BRISTOL-MYERS SQUIBB COMPANY-16210999

PATIENT
  Age: 80 Year
  Sex: Male
  Weight: 70 kg

DRUGS (5)
  1. AVAPRO [Suspect]
     Indication: HYPERTENSION
     Route: 048
  2. CRESTOR [Concomitant]
  3. CHONDROITIN [Concomitant]
  4. VITAMINS [Concomitant]
  5. ASPIRIN [Concomitant]

REACTIONS (1)
  - Rash pruritic [Recovered/Resolved]
